FAERS Safety Report 21063982 (Version 1)
Quarter: 2022Q3

REPORT INFORMATION
  Report Type: Report from Study
  Country: US (occurrence: US)
  Receive Date: 20220711
  Receipt Date: 20220711
  Transmission Date: 20221027
  Serious: Yes (Hospitalization, Other)
  Sender: FDA-Public Use
  Company Number: US-BRISTOL-MYERS SQUIBB COMPANY-2022-065355

PATIENT
  Age: 79 Year
  Sex: Male
  Weight: 95.254 kg

DRUGS (24)
  1. REVLIMID [Suspect]
     Active Substance: LENALIDOMIDE
     Indication: 5q minus syndrome
     Route: 048
     Dates: start: 20210219
  2. REVLIMID [Suspect]
     Active Substance: LENALIDOMIDE
     Indication: Cytogenetic abnormality
  3. REVLIMID [Suspect]
     Active Substance: LENALIDOMIDE
     Indication: Myelodysplastic syndrome
  4. DOXYCYCLINE HYCLATE [Concomitant]
     Active Substance: DOXYCYCLINE HYCLATE
  5. TRESIBA [Concomitant]
     Active Substance: INSULIN DEGLUDEC
  6. SUPER B COMPLEX [VITAMIN B COMPLEX] [Concomitant]
  7. EPINEPHRINE [Concomitant]
     Active Substance: EPINEPHRINE
  8. LOVASTATIN [Concomitant]
     Active Substance: LOVASTATIN
  9. TAMSULOSIN [Concomitant]
     Active Substance: TAMSULOSIN
  10. LEVOTHYROXINE [Concomitant]
     Active Substance: LEVOTHYROXINE
  11. NIZORAL A-D [Concomitant]
     Active Substance: KETOCONAZOLE
  12. ALLOPURINOL SODIUM [Concomitant]
     Active Substance: ALLOPURINOL SODIUM
  13. LORATADINE [Concomitant]
     Active Substance: LORATADINE
  14. VITAMIN D3 [Concomitant]
     Active Substance: CHOLECALCIFEROL
  15. VITAMIN B12 [Concomitant]
     Active Substance: CYANOCOBALAMIN
  16. PRIMIDONE [Concomitant]
     Active Substance: PRIMIDONE
  17. VITAMIN C FLAVOUR [Concomitant]
  18. COENZYME Q10 [Concomitant]
     Active Substance: DIETARY SUPPLEMENT\UBIDECARENONE
  19. ASPIRIN [Concomitant]
     Active Substance: ASPIRIN
  20. TRIAMCINOLONE ACETONIDE [Concomitant]
     Active Substance: TRIAMCINOLONE ACETONIDE
  21. MAGNESIUM [Concomitant]
     Active Substance: MAGNESIUM
  22. AMIODARONE [Concomitant]
     Active Substance: AMIODARONE
  23. EPINEPHRINE [Concomitant]
     Active Substance: EPINEPHRINE
  24. VITAMINS NOS [Concomitant]
     Active Substance: VITAMINS

REACTIONS (2)
  - Thrombocytopenia [Unknown]
  - Chronic kidney disease [Unknown]
